FAERS Safety Report 11008961 (Version 1)
Quarter: 2015Q2

REPORT INFORMATION
  Report Type: Spontaneous
  Country: US (occurrence: US)
  Receive Date: 20150410
  Receipt Date: 20150410
  Transmission Date: 20150821
  Serious: No
  Sender: FDA-Public Use
  Company Number: US-PFIZER INC-2015120852

PATIENT
  Age: 48 Year
  Sex: Female
  Weight: 86 kg

DRUGS (4)
  1. TEGRETAL [Concomitant]
     Active Substance: CARBAMAZEPINE
     Dosage: 1000 MG, DAILY (200 MG, TWO IN THE MORNING, ONE AT LUNCH TIME AND TWO AT BEDTIME)
     Route: 048
  2. GABAPENTIN. [Suspect]
     Active Substance: GABAPENTIN
     Indication: SEIZURE
     Dosage: UNK
  3. ZONEGRAN [Concomitant]
     Active Substance: ZONISAMIDE
     Dosage: 300 MG, DAILY (100MG IN THE MORNING AND 200MG AT BEDTIME)
     Route: 048
  4. LISINOPRIL. [Concomitant]
     Active Substance: LISINOPRIL
     Dosage: 10 MG, DAILY
     Route: 048

REACTIONS (1)
  - Drug ineffective [Unknown]
